FAERS Safety Report 19582987 (Version 1)
Quarter: 2021Q3

REPORT INFORMATION
  Report Type: Spontaneous
  Country: US (occurrence: US)
  Receive Date: 20210720
  Receipt Date: 20210720
  Transmission Date: 20211014
  Serious: Yes (Other)
  Sender: FDA-Public Use
  Company Number: None

PATIENT
  Age: 45 Year
  Weight: 101.25 kg

DRUGS (5)
  1. CAPECITABINE. [Suspect]
     Active Substance: CAPECITABINE
     Indication: BREAST CANCER
     Route: 048
     Dates: start: 20210422
  2. LISINOPRIL. [Concomitant]
     Active Substance: LISINOPRIL
  3. ATENOLOL. [Concomitant]
     Active Substance: ATENOLOL
  4. LYRICA [Concomitant]
     Active Substance: PREGABALIN
  5. COLLAGEN [Concomitant]
     Active Substance: COLLAGEN

REACTIONS (2)
  - Nausea [None]
  - Bone pain [None]

NARRATIVE: CASE EVENT DATE: 20210720
